FAERS Safety Report 6377487-0 (Version None)
Quarter: 2009Q3

REPORT INFORMATION
  Report Type: 
  Country: None (occurrence: None)
  Receive Date: 20090925
  Receipt Date: 20090916
  Transmission Date: 20100115
  Serious: Yes (Other)
  Sender: FDA-Public Use
  Company Number: BR-ROCHE-657379

PATIENT
  Sex: Female
  Weight: 65 kg

DRUGS (2)
  1. ROACUTAN [Suspect]
     Indication: ACNE
     Route: 048
     Dates: start: 20090301, end: 20090905
  2. NEULEPTIL [Concomitant]
     Indication: INSOMNIA

REACTIONS (2)
  - NO ADVERSE EVENT [None]
  - PREGNANCY [None]
